FAERS Safety Report 20636017 (Version 4)
Quarter: 2022Q4

REPORT INFORMATION
  Report Type: Report from Study
  Country: DE (occurrence: DE)
  Receive Date: 20220325
  Receipt Date: 20221117
  Transmission Date: 20230113
  Serious: Yes (Other)
  Sender: FDA-Public Use
  Company Number: DE-NOVARTISPH-NVSC2022DE067007

PATIENT
  Sex: Female
  Weight: 65.5 kg

DRUGS (3)
  1. KISQALI [Suspect]
     Active Substance: RIBOCICLIB
     Indication: Breast cancer metastatic
     Dosage: 600 MG, QD (SCHEMA 21 DAYS INTAKE, 7 DAYS PAUSE)
     Route: 048
     Dates: start: 20201020, end: 20210509
  2. KISQALI [Suspect]
     Active Substance: RIBOCICLIB
     Dosage: 400 MG, QD (SCHEMA 21 DAYS INTAKE, 7 DAYS PAUSE)
     Route: 048
     Dates: start: 20210510, end: 20211206
  3. LETROZOLE [Suspect]
     Active Substance: LETROZOLE
     Indication: Breast cancer metastatic
     Dosage: 2.5 MG, QD
     Route: 048
     Dates: start: 20201020, end: 20211213

REACTIONS (1)
  - Vulval abscess [Recovered/Resolved]

NARRATIVE: CASE EVENT DATE: 20220224
